FAERS Safety Report 4536254-0 (Version None)
Quarter: 2004Q4

REPORT INFORMATION
  Report Type: 
  Country: None (occurrence: None)
  Receive Date: 20041223
  Receipt Date: 20040517
  Transmission Date: 20050328
  Serious: No
  Sender: FDA-Public Use
  Company Number: US-GLAXOSMITHKLINE-A0511089A

PATIENT
  Age: 78 Year
  Sex: Female

DRUGS (5)
  1. FLONASE [Suspect]
     Indication: ILL-DEFINED DISORDER
     Dosage: 1PUFF TWICE PER DAY
     Route: 045
     Dates: start: 20040315, end: 20040430
  2. ADVAIR DISKUS 100/50 [Concomitant]
  3. MEDROL [Concomitant]
  4. BEXTRA [Concomitant]
  5. SALINE NASAL SPRAY [Concomitant]

REACTIONS (1)
  - SKIN ODOUR ABNORMAL [None]
